FAERS Safety Report 24701524 (Version 2)
Quarter: 2024Q4

REPORT INFORMATION
  Report Type: Spontaneous
  Country: TR (occurrence: TR)
  Receive Date: 20241205
  Receipt Date: 20241224
  Transmission Date: 20250114
  Serious: Yes (Hospitalization)
  Sender: BAYER HEALTHCARE PHARMACEUTICALS INC.
  Company Number: TR-BAYER-2024A164093

PATIENT
  Age: 39 Year
  Sex: Female
  Weight: 61 kg

DRUGS (1)
  1. AVELOX [Suspect]
     Active Substance: MOXIFLOXACIN HYDROCHLORIDE
     Indication: Pneumonia
     Dosage: 400 MG
     Route: 048
     Dates: start: 20241112, end: 20241112

REACTIONS (7)
  - Hypertension [Recovered/Resolved]
  - Heart rate increased [Recovering/Resolving]
  - Abdominal pain upper [Recovering/Resolving]
  - Confusional state [Recovering/Resolving]
  - Skin discolouration [Recovered/Resolved]
  - Tremor [Recovered/Resolved]
  - Malaise [Recovered/Resolved]

NARRATIVE: CASE EVENT DATE: 20241112
